FAERS Safety Report 10579499 (Version 3)
Quarter: 2015Q3

REPORT INFORMATION
  Report Type: Spontaneous
  Country: US (occurrence: US)
  Receive Date: 20141112
  Receipt Date: 20150707
  Transmission Date: 20151125
  Serious: Yes (Hospitalization)
  Sender: FDA-Public Use
  Company Number: US-BAYER-2014-166309

PATIENT
  Age: 18 Year
  Sex: Female
  Weight: 90.7 kg

DRUGS (1)
  1. MIRENA [Suspect]
     Active Substance: LEVONORGESTREL
     Indication: CONTRACEPTION
     Dosage: 20 MCG/24HR, CONT
     Route: 015
     Dates: start: 20080229, end: 20090129

REACTIONS (7)
  - Abdominal pain lower [None]
  - Fear [None]
  - Device issue [None]
  - Fear of death [None]
  - Injury [None]
  - Uterine perforation [None]
  - Menorrhagia [None]

NARRATIVE: CASE EVENT DATE: 200802
